FAERS Safety Report 17318220 (Version 2)
Quarter: 2025Q2

REPORT INFORMATION
  Report Type: Spontaneous
  Country: PT (occurrence: PT)
  Receive Date: 20200124
  Receipt Date: 20250617
  Transmission Date: 20250716
  Serious: Yes (Death, Hospitalization, Other)
  Sender: MYLAN
  Company Number: PT-KERNPHARMA-20194896

PATIENT
  Age: 66 Year
  Sex: Male

DRUGS (3)
  1. METFORMIN [Suspect]
     Active Substance: METFORMIN HYDROCHLORIDE
     Indication: Product used for unknown indication
     Dosage: 500 MILLIGRAM, QD (DAILY)
  2. RAMIPRIL [Suspect]
     Active Substance: RAMIPRIL
     Indication: Product used for unknown indication
     Dosage: 10 MILLIGRAM, QD (DAILY)
  3. CHLORTHALIDONE [Suspect]
     Active Substance: CHLORTHALIDONE
     Indication: Product used for unknown indication
     Dosage: 50 MILLIGRAM, QD (DAILY)

REACTIONS (2)
  - Amyloidosis [Fatal]
  - Hypotension [Unknown]
